FAERS Safety Report 6936878-7 (Version None)
Quarter: 2010Q3

REPORT INFORMATION
  Report Type: 
  Country: None (occurrence: None)
  Receive Date: 20100823
  Receipt Date: 20100812
  Transmission Date: 20110219
  Serious: Yes (Other)
  Sender: FDA-Public Use
  Company Number: AR-JNJFOC-20100804354

PATIENT
  Sex: Female

DRUGS (1)
  1. REMICADE [Suspect]
     Indication: PSORIASIS
     Route: 042

REACTIONS (3)
  - HEPATITIS B SURFACE ANTIGEN POSITIVE [None]
  - PRURITUS [None]
  - RASH [None]
